FAERS Safety Report 11822277 (Version 2)
Quarter: 2015Q4

REPORT INFORMATION
  Report Type: Spontaneous
  Country: CH (occurrence: DE)
  Receive Date: 20151210
  Receipt Date: 20151222
  Transmission Date: 20160305
  Serious: Yes (Other)
  Sender: FDA-Public Use
  Company Number: CH-LPDUSPRD-20150984

PATIENT
  Age: 48 Year
  Sex: Female
  Weight: 78 kg

DRUGS (4)
  1. L-THYROXIN [Concomitant]
     Active Substance: LEVOTHYROXINE SODIUM
     Dosage: 125 MCG (FOR A LONG TIME)
     Route: 065
  2. VENOFER [Suspect]
     Active Substance: IRON SUCROSE
     Dosage: 100 MG EVERY 14 DAYS
     Route: 040
     Dates: start: 20150817, end: 20150921
  3. SALBUHEXAL [Concomitant]
     Active Substance: ALBUTEROL
     Dosage: ONE DOSE IF NECESSARY
     Route: 065
  4. VITAMIN B12 [Concomitant]
     Active Substance: CYANOCOBALAMIN
     Dosage: ONE AMPOULE EVERY THREE MONTHS
     Route: 065

REACTIONS (7)
  - Throat tightness [Unknown]
  - Obstruction [Unknown]
  - Cough [Unknown]
  - Product preparation error [Unknown]
  - Tachycardia [Unknown]
  - Feeling abnormal [Unknown]
  - Dyspnoea [Unknown]

NARRATIVE: CASE EVENT DATE: 20150817
